FAERS Safety Report 24554327 (Version 3)
Quarter: 2025Q1

REPORT INFORMATION
  Report Type: Spontaneous
  Country: US (occurrence: US)
  Receive Date: 20241028
  Receipt Date: 20250218
  Transmission Date: 20250409
  Serious: Yes (Hospitalization, Other)
  Sender: ABBVIE
  Company Number: US-ABBVIE-5975801

PATIENT
  Age: 71 Year
  Sex: Female
  Weight: 69 kg

DRUGS (3)
  1. HUMIRA [Suspect]
     Active Substance: ADALIMUMAB
     Indication: Rheumatoid arthritis
     Dosage: FORM STRENGTH:40 MG
     Route: 058
     Dates: start: 20210421, end: 2024
  2. HUMIRA [Suspect]
     Active Substance: ADALIMUMAB
     Dosage: FORM STRENGTH:40 MG
     Route: 058
     Dates: start: 20200529, end: 2021
  3. HUMIRA [Suspect]
     Active Substance: ADALIMUMAB
     Dosage: FORM STRENGTH:40 MG
     Route: 058
     Dates: start: 20241104

REACTIONS (8)
  - Hip arthroplasty [Recovered/Resolved]
  - Bronchitis [Recovered/Resolved]
  - Dermatitis atopic [Recovered/Resolved]
  - Cataract [Recovered/Resolved]
  - Glaucoma [Not Recovered/Not Resolved]
  - Bronchitis [Recovered/Resolved]
  - Thyroid mass [Unknown]
  - Oral candidiasis [Recovered/Resolved]

NARRATIVE: CASE EVENT DATE: 20220715
